FAERS Safety Report 9532272 (Version 1)
Quarter: 2013Q3

REPORT INFORMATION
  Report Type: Spontaneous
  Country: US (occurrence: None)
  Receive Date: 20130916
  Receipt Date: 20130916
  Transmission Date: 20140515
  Serious: Yes (Other)
  Sender: FDA-Public Use
  Company Number: 2013AP007961

PATIENT
  Age: 18 Day
  Sex: Male
  Weight: 3.05 kg

DRUGS (3)
  1. ENALAPRIL MALEATE TABLETS, USP [Suspect]
     Route: 048
  2. FUROSEMIDE [Suspect]
     Indication: POLYURIA
  3. SPIRONOLACTONE [Suspect]
     Indication: POLYURIA

REACTIONS (3)
  - Renal failure acute [None]
  - Hypotension [None]
  - Off label use [None]
